FAERS Safety Report 16716720 (Version 1)
Quarter: 2019Q3

REPORT INFORMATION
  Report Type: Spontaneous
  Country: US (occurrence: US)
  Receive Date: 20190819
  Receipt Date: 20190819
  Transmission Date: 20191005
  Serious: Yes (Death)
  Sender: FDA-Public Use
  Company Number: US-ANIPHARMA-2019-US-013451

PATIENT
  Sex: Male
  Weight: 3.5 kg

DRUGS (1)
  1. MORPHINE SULFATE ORAL SOLUTION (NON-SPECIFIC) [Suspect]
     Active Substance: MORPHINE SULFATE
     Indication: PAIN

REACTIONS (6)
  - Pulmonary hypertension [Fatal]
  - Death [Fatal]
  - Respiratory distress [Fatal]
  - Hypotension [Fatal]
  - Coagulopathy [Fatal]
  - Mastocytosis [Fatal]
